FAERS Safety Report 8009958-5 (Version None)
Quarter: 2011Q4

REPORT INFORMATION
  Report Type: 
  Country: None (occurrence: None)
  Receive Date: 20111228
  Receipt Date: 20111215
  Transmission Date: 20120403
  Serious: Yes (Other)
  Sender: FDA-Public Use
  Company Number: PHHY2011IN109426

PATIENT
  Age: 30 Month
  Sex: Female

DRUGS (3)
  1. DIAZOXIDE [Concomitant]
     Dosage: UNK UKN, UNK
  2. HYDROCORTISONE [Concomitant]
     Dosage: UNK UKN, UNK
     Route: 065
  3. OCTREOTIDE ACETATE [Suspect]
     Dosage: UNK UKN, UNK
     Route: 065

REACTIONS (4)
  - MENINGITIS [None]
  - CONVULSION [None]
  - NO THERAPEUTIC RESPONSE [None]
  - HYDROCEPHALUS [None]
